FAERS Safety Report 6888567-5 (Version None)
Quarter: 2010Q3

REPORT INFORMATION
  Report Type: 
  Country: None (occurrence: None)
  Receive Date: 20100730
  Receipt Date: 20100722
  Transmission Date: 20110219
  Serious: Yes (Hospitalization)
  Sender: FDA-Public Use
  Company Number: DE-AMGEN-QUU426974

PATIENT
  Age: 44 Year
  Sex: Male

DRUGS (4)
  1. ENBREL [Suspect]
     Indication: RHEUMATOID ARTHRITIS
     Route: 058
     Dates: start: 20100113
  2. ENBREL [Suspect]
     Indication: POLYARTHRITIS
  3. VOLTAREN [Concomitant]
     Dosage: UNKNOWN
  4. GLUCOCORTICOIDS [Concomitant]

REACTIONS (2)
  - INFECTION [None]
  - NEPHROLITHIASIS [None]
